FAERS Safety Report 24799838 (Version 1)
Quarter: 2025Q1

REPORT INFORMATION
  Report Type: Spontaneous
  Country: JP (occurrence: JP)
  Receive Date: 20250102
  Receipt Date: 20250102
  Transmission Date: 20250409
  Serious: Yes (Other)
  Sender: PFIZER
  Company Number: JP-PFIZER INC-202400333421

PATIENT

DRUGS (1)
  1. MEROPENEM [Suspect]
     Active Substance: MEROPENEM
     Route: 041

REACTIONS (1)
  - Cerebral haemorrhage [Unknown]
